FAERS Safety Report 17669410 (Version 2)
Quarter: 2020Q2

REPORT INFORMATION
  Report Type: Spontaneous
  Country: FR (occurrence: FR)
  Receive Date: 20200415
  Receipt Date: 20200608
  Transmission Date: 20200713
  Serious: Yes (Other)
  Sender: FDA-Public Use
  Company Number: FR-TEVA-2020-FR-1223262

PATIENT
  Age: 76 Year
  Sex: Female
  Weight: 65 kg

DRUGS (6)
  1. XANAX [Suspect]
     Active Substance: ALPRAZOLAM
     Indication: ANXIETY
     Dosage: 1 DF, XANAX 0,25 MG,
     Route: 048
     Dates: start: 20200331, end: 20200402
  2. PRIMPERAN [Suspect]
     Active Substance: METOCLOPRAMIDE HYDROCHLORIDE
     Indication: NAUSEA
     Dosage: 1 AMPOULE MORNING, NOON AND EVENING, 3 DF,
     Route: 042
     Dates: start: 20200327, end: 20200402
  3. LANSOPRAZOLE. [Suspect]
     Active Substance: LANSOPRAZOLE
     Indication: GASTROOESOPHAGEAL REFLUX DISEASE
     Dosage: 1 DF
     Route: 048
     Dates: start: 20200327
  4. PARACETAMOL [Suspect]
     Active Substance: ACETAMINOPHEN
     Indication: PAIN
     Dosage: TABLETS IF PAIN, 1 DF
     Route: 048
     Dates: start: 20200327
  5. KALETRA [Suspect]
     Active Substance: LOPINAVIR\RITONAVIR
     Indication: CORONAVIRUS INFECTION
     Dosage: 2 TABLETS MORNING AND EVENING, 4 DF
     Route: 048
     Dates: start: 20200328, end: 20200402
  6. DALTEPARINE SODIQUE ((MAMMIFERE/PORC/MUQUEUSE INTESTINALE)) [Suspect]
     Active Substance: DALTEPARIN SODIUM
     Indication: THROMBOSIS PROPHYLAXIS
     Dosage: 5000 IU,
     Route: 058
     Dates: start: 20200328

REACTIONS (2)
  - Hepatocellular injury [Recovering/Resolving]
  - Cholestasis [Not Recovered/Not Resolved]

NARRATIVE: CASE EVENT DATE: 20200402
